FAERS Safety Report 12132687 (Version 5)
Quarter: 2016Q2

REPORT INFORMATION
  Report Type: Report from Study
  Country: US (occurrence: US)
  Receive Date: 20160301
  Receipt Date: 20160613
  Transmission Date: 20160815
  Serious: Yes (Death, Hospitalization, Other)
  Sender: FDA-Public Use
  Company Number: US-BAYER-2014-125770

PATIENT
  Age: 65 Year
  Sex: Female
  Weight: 103.99 kg

DRUGS (14)
  1. ADEMPAS [Suspect]
     Active Substance: RIOCIGUAT
     Indication: PULMONARY ARTERIAL HYPERTENSION
     Dosage: 2.5 MG, TID
     Route: 048
  2. ADEMPAS [Suspect]
     Active Substance: RIOCIGUAT
     Indication: PULMONARY ARTERIAL HYPERTENSION
     Dosage: 2.5 MG, TID
     Route: 048
  3. OPSUMIT [Concomitant]
     Active Substance: MACITENTAN
  4. ADEMPAS [Suspect]
     Active Substance: RIOCIGUAT
     Indication: PULMONARY ARTERIAL HYPERTENSION
     Dosage: 0.5 MG, TID
     Route: 048
  5. ADEMPAS [Suspect]
     Active Substance: RIOCIGUAT
     Indication: PULMONARY ARTERIAL HYPERTENSION
     Dosage: 2 MG, TID
     Route: 048
  6. ADEMPAS [Suspect]
     Active Substance: RIOCIGUAT
     Indication: PULMONARY ARTERIAL HYPERTENSION
     Dosage: 2.5 MG, TID
     Route: 048
  7. PLAVIX [Concomitant]
     Active Substance: CLOPIDOGREL BISULFATE
  8. TYVASO [Suspect]
     Active Substance: TREPROSTINIL
     Indication: PULMONARY ARTERIAL HYPERTENSION
     Dosage: 18-54 MCG QID
     Route: 055
     Dates: start: 20140814
  9. ADEMPAS [Suspect]
     Active Substance: RIOCIGUAT
     Indication: PULMONARY ARTERIAL HYPERTENSION
     Dosage: UNK
     Dates: start: 20150811
  10. ADEMPAS [Suspect]
     Active Substance: RIOCIGUAT
     Indication: PULMONARY ARTERIAL HYPERTENSION
     Dosage: 2.5 MG, TID
     Route: 048
  11. SELEXIPAG [Suspect]
     Active Substance: SELEXIPAG
     Dosage: UNK
  12. ASPIRIN. [Concomitant]
     Active Substance: ASPIRIN
  13. ADEMPAS [Suspect]
     Active Substance: RIOCIGUAT
     Indication: PULMONARY ARTERIAL HYPERTENSION
     Dosage: 1 MG, TID
     Route: 048
     Dates: start: 20140812
  14. ADEMPAS [Suspect]
     Active Substance: RIOCIGUAT
     Indication: PULMONARY ARTERIAL HYPERTENSION
     Dosage: 2.5 MG, TID (LAST SHIPPED 29-OCT-2015)
     Route: 048

REACTIONS (35)
  - Weight decreased [Unknown]
  - Fatigue [Unknown]
  - Hospitalisation [None]
  - Gastrointestinal haemorrhage [None]
  - Acute respiratory distress syndrome [Unknown]
  - Diarrhoea [None]
  - Anaemia [Unknown]
  - Lung hypoinflation [Unknown]
  - Headache [Recovered/Resolved]
  - Malaise [None]
  - Death [Fatal]
  - Haemoglobin decreased [None]
  - Internal haemorrhage [Unknown]
  - Abdominal pain upper [Unknown]
  - Fall [None]
  - Dyspnoea [None]
  - Dyspepsia [None]
  - Nausea [Recovered/Resolved]
  - Pulmonary arterial hypertension [Unknown]
  - Lung disorder [None]
  - Swelling [Unknown]
  - Hospitalisation [None]
  - Headache [None]
  - Hypotension [None]
  - Pulmonary arterial hypertension [None]
  - Pulmonary arterial hypertension [None]
  - Dyspnoea [Unknown]
  - Renal failure [Unknown]
  - Dizziness [Unknown]
  - Fatigue [None]
  - Hypotension [Unknown]
  - Hospitalisation [Unknown]
  - Nausea [Unknown]
  - Oxygen saturation decreased [None]
  - Adverse drug reaction [None]

NARRATIVE: CASE EVENT DATE: 20140812
